FAERS Safety Report 7339898-6 (Version None)
Quarter: 2011Q1

REPORT INFORMATION
  Report Type: 
  Country: None (occurrence: None)
  Receive Date: 20110228
  Receipt Date: 20110214
  Transmission Date: 20110831
  Serious: Yes (Death)
  Sender: FDA-Public Use
  Company Number: 835059

PATIENT
  Age: 44 Year
  Sex: Male

DRUGS (8)
  1. PIPERACILLIN AND TAZOBACTAM [Suspect]
     Indication: PRODUCT USED FOR UNKNOWN INDICATION
  2. FLUCONAZOLE [Concomitant]
  3. IDARUBICIN HCL [Suspect]
     Indication: PRODUCT USED FOR UNKNOWN INDICATION
  4. GENTAMICIN SULFATE [Concomitant]
  5. ETOPOSIDE [Suspect]
     Indication: PRODUCT USED FOR UNKNOWN INDICATION
  6. MEROPENEM [Concomitant]
  7. VANCOMYCIN HYDROCHLORIDE [Concomitant]
  8. CYTARABINE [Suspect]
     Indication: PRODUCT USED FOR UNKNOWN INDICATION

REACTIONS (2)
  - TOXIC SHOCK SYNDROME [None]
  - PANCYTOPENIA [None]
